FAERS Safety Report 13428899 (Version 2)
Quarter: 2017Q2

REPORT INFORMATION
  Report Type: Spontaneous
  Country: US (occurrence: US)
  Receive Date: 20170411
  Receipt Date: 20170413
  Transmission Date: 20170830
  Serious: No
  Sender: FDA-Public Use
  Company Number: US-BIOGEN-2017BI00384518

PATIENT
  Age: 45 Year

DRUGS (1)
  1. AVONEX [Suspect]
     Active Substance: INTERFERON BETA-1A
     Indication: MULTIPLE SCLEROSIS
     Route: 030
     Dates: start: 20130909

REACTIONS (6)
  - Headache [Not Recovered/Not Resolved]
  - Musculoskeletal disorder [Unknown]
  - Muscular weakness [Not Recovered/Not Resolved]
  - Stress [Unknown]
  - Dysarthria [Not Recovered/Not Resolved]
  - Spinal cord disorder [Not Recovered/Not Resolved]

NARRATIVE: CASE EVENT DATE: 20170402
